FAERS Safety Report 7070247-7 (Version None)
Quarter: 2010Q4

REPORT INFORMATION
  Report Type: 
  Country: None (occurrence: None)
  Receive Date: 20101028
  Receipt Date: 20100922
  Transmission Date: 20110411
  Serious: No
  Sender: FDA-Public Use
  Company Number: US-WYE-H17739510

PATIENT
  Sex: Female

DRUGS (8)
  1. PROTONIX [Suspect]
     Dosage: UNKNOWN
  2. METHOTREXATE [Concomitant]
  3. FOLIC ACID [Concomitant]
  4. ASPIRIN [Concomitant]
  5. SYNTHROID [Concomitant]
  6. TENORMIN [Concomitant]
  7. PLAVIX [Concomitant]
  8. LIPITOR [Concomitant]

REACTIONS (1)
  - DYSPEPSIA [None]
